FAERS Safety Report 7491647-7 (Version None)
Quarter: 2011Q2

REPORT INFORMATION
  Report Type: 
  Country: None (occurrence: None)
  Receive Date: 20110519
  Receipt Date: 20110512
  Transmission Date: 20111010
  Serious: Yes (Other)
  Sender: FDA-Public Use
  Company Number: BR-PFIZER INC-2011102465

PATIENT
  Age: 46 Year
  Sex: Female
  Weight: 64 kg

DRUGS (3)
  1. DEPO-PROVERA [Suspect]
     Indication: OFF LABEL USE
     Dosage: UNK
     Route: 030
     Dates: start: 20080501, end: 20110501
  2. DEPO-PROVERA [Suspect]
     Indication: UTERINE LEIOMYOMA
  3. DEPO-PROVERA [Suspect]
     Indication: MENORRHAGIA

REACTIONS (1)
  - BIPOLAR DISORDER [None]
